FAERS Safety Report 24461743 (Version 1)
Quarter: 2024Q4

REPORT INFORMATION
  Report Type: Spontaneous
  Country: CN (occurrence: CN)
  Receive Date: 20241018
  Receipt Date: 20241018
  Transmission Date: 20250115
  Serious: Yes (Hospitalization, Other)
  Sender: JUBILANT
  Company Number: None

PATIENT
  Age: 67 Year
  Sex: Male

DRUGS (8)
  1. LEVOFLOXACIN [Suspect]
     Active Substance: LEVOFLOXACIN
     Indication: Anti-infective therapy
     Dosage: UNK, UNK
     Route: 065
     Dates: start: 202310, end: 202311
  2. PROPOFOL [Suspect]
     Active Substance: PROPOFOL
     Indication: Sedation
     Dosage: UNK, UNK
     Route: 065
     Dates: start: 2023
  3. FUROSEMIDE [Suspect]
     Active Substance: FUROSEMIDE
     Indication: Polyuria
     Dosage: UNK, UNK
     Route: 065
     Dates: start: 20231103, end: 20231107
  4. MEROPENEM [Suspect]
     Active Substance: MEROPENEM
     Indication: Anti-infective therapy
     Dosage: UNK, UNK
     Route: 065
     Dates: start: 202310, end: 202311
  5. OMADACYCLINE [Suspect]
     Active Substance: OMADACYCLINE
     Indication: Acinetobacter infection
     Dosage: UNK, UNK
     Route: 065
     Dates: start: 202311, end: 202311
  6. CEFOPERAZONE SODIUM\SULBACTAM [Suspect]
     Active Substance: CEFOPERAZONE SODIUM\SULBACTAM
     Indication: Anti-infective therapy
     Dosage: UNK, UNK
     Route: 065
     Dates: start: 202311
  7. AMLODIPINE [Concomitant]
     Active Substance: AMLODIPINE BESYLATE
     Indication: Hypertension
     Dosage: UNK, UNK
     Route: 065
  8. METOPROLOL [Concomitant]
     Active Substance: METOPROLOL
     Indication: Hypertension
     Dosage: UNK, UNK
     Route: 065

REACTIONS (3)
  - Pancreatitis acute [Recovered/Resolved]
  - Cholestasis [Unknown]
  - Renal impairment [Unknown]

NARRATIVE: CASE EVENT DATE: 20231101
